FAERS Safety Report 7994427-9 (Version None)
Quarter: 2011Q4

REPORT INFORMATION
  Report Type: 
  Country: None (occurrence: None)
  Receive Date: 20111220
  Receipt Date: 20111216
  Transmission Date: 20120403
  Serious: Yes (Hospitalization)
  Sender: FDA-Public Use
  Company Number: DE-ABBOTT-11P-062-0883624-00

PATIENT
  Sex: Male

DRUGS (5)
  1. HUMIRA [Suspect]
     Indication: PSORIASIS
     Route: 058
     Dates: start: 20080821
  2. ARCOXIA [Concomitant]
     Indication: PRODUCT USED FOR UNKNOWN INDICATION
     Route: 048
  3. IBUPROFEN TABLETS [Concomitant]
     Indication: PRODUCT USED FOR UNKNOWN INDICATION
  4. PANTOPRAZOLE SODIUM [Concomitant]
     Indication: GASTROOESOPHAGEAL REFLUX DISEASE
     Dosage: DAILY DOSE: 40 MILLIGRAM
     Route: 048
     Dates: start: 20110801
  5. ASPIRIN [Concomitant]
     Indication: MYOCARDIAL INFARCTION
     Dosage: DAILY DOSE: 100 MILLIGRAM
     Dates: start: 20030101

REACTIONS (3)
  - BURSITIS [None]
  - IMMUNOSUPPRESSION [None]
  - PSORIASIS [None]
